FAERS Safety Report 4648147-9 (Version None)
Quarter: 2005Q2

REPORT INFORMATION
  Report Type: 
  Country: None (occurrence: None)
  Receive Date: 20050331
  Receipt Date: 20041209
  Transmission Date: 20051028
  Serious: Yes (Hospitalization)
  Sender: FDA-Public Use
  Company Number: 04P-163-0282803

PATIENT
  Age: 65 Year
  Sex: Male
  Weight: 65.7716 kg

DRUGS (12)
  1. HUMIRA [Suspect]
     Indication: RHEUMATOID ARTHRITIS
     Dosage: 40 MG, 1 IN 2 WK, SUBCUTANEOUS
     Route: 058
     Dates: start: 20030101, end: 20041205
  2. ADVAIR DISKUS 100/50 [Suspect]
     Indication: LUNG DISORDER
     Dosage: INHALATION
     Route: 055
     Dates: start: 20041204, end: 20041205
  3. ACETYLSALICYLIC ACID [Concomitant]
  4. PREDNISONE [Concomitant]
  5. ISOSORBIDE [Concomitant]
  6. METOPROLOL SUCCINATE [Concomitant]
  7. NITROGLYCERIN [Concomitant]
  8. FUROSEMIDE [Concomitant]
  9. POTASSIUM CHLORIDE [Concomitant]
  10. ROSIGLITAZONE MALEATE [Concomitant]
  11. SERTRALINE HYDROCHLORIDE [Concomitant]
  12. OXYGEN [Concomitant]

REACTIONS (2)
  - DERMATITIS BULLOUS [None]
  - PNEUMONIA [None]
